FAERS Safety Report 24939604 (Version 1)
Quarter: 2025Q1

REPORT INFORMATION
  Report Type: Spontaneous
  Country: BR (occurrence: BR)
  Receive Date: 20250207
  Receipt Date: 20250207
  Transmission Date: 20250409
  Serious: Yes (Death, Life-Threatening, Hospitalization, Other)
  Sender: UNICHEM
  Company Number: BR-UNICHEM LABORATORIES LIMITED-UNI-2025-BR-000189

PATIENT

DRUGS (2)
  1. DIVALPROEX SODIUM [Suspect]
     Active Substance: DIVALPROEX SODIUM
     Indication: Intentional overdose
     Route: 048
  2. QUETIAPINE [Suspect]
     Active Substance: QUETIAPINE
     Indication: Intentional overdose
     Route: 048

REACTIONS (14)
  - Cardio-respiratory arrest [Fatal]
  - Completed suicide [Fatal]
  - Hypovolaemic shock [Unknown]
  - Arrhythmia [Unknown]
  - Pneumonia aspiration [Unknown]
  - Leukocytosis [Unknown]
  - Respiratory failure [Unknown]
  - Hepatic failure [Unknown]
  - Pancreatic failure [Unknown]
  - Electrolyte imbalance [Unknown]
  - Renal failure [Unknown]
  - Metabolic acidosis [Unknown]
  - Toxicity to various agents [Unknown]
  - Intentional overdose [Unknown]
